FAERS Safety Report 8352033-0 (Version None)
Quarter: 2012Q2

REPORT INFORMATION
  Report Type: 
  Country: None (occurrence: None)
  Receive Date: 20120510
  Receipt Date: 20120510
  Transmission Date: 20120825
  Serious: Yes (Death)
  Sender: FDA-Public Use
  Company Number: None

PATIENT
  Age: 63 Year
  Sex: Female

DRUGS (6)
  1. CALCIUM ACETATE [Concomitant]
  2. EPOGEN [Concomitant]
  3. AMLODIPINE BESYLATE [Concomitant]
  4. REVLIMID [Suspect]
     Indication: MULTIPLE MYELOMA
     Dosage: 5MG  DAILY ORALLY
     Route: 048
     Dates: start: 20110601, end: 20111201
  5. ANASTROZOLE [Concomitant]
  6. SEVALAMER [Concomitant]

REACTIONS (1)
  - DRUG THERAPY CHANGED [None]
